FAERS Safety Report 8020321-3 (Version None)
Quarter: 2012Q1

REPORT INFORMATION
  Report Type: 
  Country: None (occurrence: None)
  Receive Date: 20120103
  Receipt Date: 20111216
  Transmission Date: 20120608
  Serious: Yes (Other)
  Sender: FDA-Public Use
  Company Number: JP-ROCHE-1020913

PATIENT
  Sex: Male
  Weight: 64 kg

DRUGS (5)
  1. XELODA [Suspect]
     Indication: RECTAL CANCER METASTATIC
     Dosage: IT IS ONE ADMINISTERING WEEKLY HOLIDAY MEDICINE FOR TWO WEEKS.
     Route: 048
     Dates: start: 20110221, end: 20110817
  2. OXALIPLATIN [Suspect]
     Indication: RECTAL CANCER METASTATIC
     Route: 041
     Dates: start: 20110221, end: 20110817
  3. HALFDIGOXIN KY [Concomitant]
     Indication: ARRHYTHMIA
     Route: 048
     Dates: start: 20081002
  4. WARFARIN SODIUM [Concomitant]
     Route: 048
     Dates: start: 20080411
  5. BARACLUDE [Concomitant]
     Indication: VIRAL HEPATITIS CARRIER
     Route: 048
     Dates: start: 20110620

REACTIONS (2)
  - DECREASED APPETITE [None]
  - INTERSTITIAL LUNG DISEASE [None]
